FAERS Safety Report 22614088 (Version 1)
Quarter: 2023Q2

REPORT INFORMATION
  Report Type: Spontaneous
  Country: IT (occurrence: None)
  Receive Date: 20230619
  Receipt Date: 20230619
  Transmission Date: 20230721
  Serious: Yes (Death, Life-Threatening, Disabling)
  Sender: FDA-Public Use
  Company Number: 2023A138575

PATIENT
  Sex: Female
  Weight: 70 kg

DRUGS (1)
  1. DAPAGLIFLOZIN [Suspect]
     Active Substance: DAPAGLIFLOZIN
     Route: 048

REACTIONS (9)
  - Lung disorder [Fatal]
  - Gastrointestinal disorder [Fatal]
  - Glycosuria [Fatal]
  - Polyuria [Fatal]
  - Hypotension [Fatal]
  - Syncope [Fatal]
  - Weight decreased [Fatal]
  - Drug ineffective [Fatal]
  - Pollakiuria [Fatal]
